FAERS Safety Report 25815720 (Version 1)
Quarter: 2025Q3

REPORT INFORMATION
  Report Type: Spontaneous
  Country: EU (occurrence: EU)
  Receive Date: 20250918
  Receipt Date: 20250918
  Transmission Date: 20251021
  Serious: Yes (Hospitalization, Other)
  Sender: ENDO
  Company Number: EU-ENDO USA, INC.-2025-001830

PATIENT
  Age: 20 Year
  Sex: Male

DRUGS (9)
  1. AVEED [Suspect]
     Active Substance: TESTOSTERONE UNDECANOATE
     Indication: Performance enhancing product use
     Route: 065
  2. AVEED [Suspect]
     Active Substance: TESTOSTERONE UNDECANOATE
     Route: 065
  3. ANASTROZOLE [Suspect]
     Active Substance: ANASTROZOLE
     Indication: Performance enhancing product use
     Route: 065
  4. NANDROLONE [Suspect]
     Active Substance: NANDROLONE
     Indication: Performance enhancing product use
     Route: 065
  5. CABERGOLINE [Suspect]
     Active Substance: CABERGOLINE
     Indication: Performance enhancing product use
     Route: 065
  6. MECASERMIN [Suspect]
     Active Substance: MECASERMIN
     Indication: Performance enhancing product use
     Route: 065
  7. SOMATROPIN [Suspect]
     Active Substance: SOMATROPIN
     Indication: Performance enhancing product use
     Route: 065
  8. NICOTINE [Concomitant]
     Active Substance: NICOTINE
     Indication: Product used for unknown indication
     Route: 065
  9. ALPRAZOLAM [Concomitant]
     Active Substance: ALPRAZOLAM
     Indication: Product used for unknown indication
     Route: 065

REACTIONS (16)
  - Postprandial hypoglycaemia [Unknown]
  - Secondary hypogonadism [Unknown]
  - Psychomotor hyperactivity [Recovered/Resolved]
  - Irritable bowel syndrome [Unknown]
  - Peptic ulcer [Unknown]
  - Blood testosterone increased [Recovered/Resolved]
  - Arteriosclerosis coronary artery [Recovering/Resolving]
  - Intentional overdose [Recovered/Resolved]
  - Chest pain [Unknown]
  - Hypertension [Unknown]
  - Depression [Recovered/Resolved]
  - Drug abuse [Recovered/Resolved]
  - Hormone level abnormal [Unknown]
  - High density lipoprotein decreased [Recovering/Resolving]
  - Blood triglycerides increased [Unknown]
  - Alanine aminotransferase increased [Unknown]
